FAERS Safety Report 15370070 (Version 1)
Quarter: 2018Q3

REPORT INFORMATION
  Report Type: Spontaneous
  Country: US (occurrence: US)
  Receive Date: 20180904
  Receipt Date: 20180904
  Transmission Date: 20181010
  Serious: Yes (Hospitalization)
  Sender: FDA-Public Use
  Company Number: None

PATIENT
  Age: 71 Year
  Sex: Male
  Weight: 97.4 kg

DRUGS (2)
  1. TAXOL [Suspect]
     Active Substance: PACLITAXEL
     Dates: end: 20180412
  2. CARBOPLATIN. [Suspect]
     Active Substance: CARBOPLATIN
     Dates: end: 20180412

REACTIONS (8)
  - Hepatic enzyme increased [None]
  - Peripheral sensorimotor neuropathy [None]
  - Decreased appetite [None]
  - Gait disturbance [None]
  - Myopathy [None]
  - Fatigue [None]
  - Eyelid ptosis [None]
  - Diplopia [None]

NARRATIVE: CASE EVENT DATE: 20180731
